FAERS Safety Report 6188181-3 (Version None)
Quarter: 2009Q2

REPORT INFORMATION
  Report Type: 
  Country: None (occurrence: None)
  Receive Date: 20090513
  Receipt Date: 20090505
  Transmission Date: 20091009
  Serious: Yes (Other)
  Sender: FDA-Public Use
  Company Number: US-ASTRAZENECA-2009UW05464

PATIENT
  Age: 54 Year
  Sex: Female
  Weight: 99.8 kg

DRUGS (25)
  1. CRESTOR [Suspect]
     Indication: BLOOD CHOLESTEROL INCREASED
     Route: 048
     Dates: start: 20080901, end: 20090220
  2. PLAVIX [Suspect]
     Route: 048
     Dates: start: 20081001
  3. FUROSEMIDE [Suspect]
     Route: 048
     Dates: start: 20090201
  4. FUROSEMIDE [Suspect]
     Route: 048
     Dates: end: 20090201
  5. NASACORT [Concomitant]
     Dosage: PRN
     Route: 045
  6. NEXIUM [Concomitant]
     Route: 048
  7. OXCARBAZEPINE [Concomitant]
  8. ZOLPIDEM [Concomitant]
  9. ZYRTEC [Concomitant]
  10. SPIRIVA [Concomitant]
     Dosage: PRN
  11. MIRALAX [Concomitant]
     Dosage: PRN
  12. NITROGLYCERIN [Concomitant]
  13. TOPICAL MEDICATIONS FOR PSORIASIS [Concomitant]
  14. ADVAIR DISKUS 100/50 [Concomitant]
  15. ALBUTEROL [Concomitant]
     Route: 055
  16. ASPIRIN [Concomitant]
     Dosage: 325 MG
  17. AMLODIPINE [Concomitant]
  18. BUPROPION HCL [Concomitant]
     Indication: TOBACCO USER
  19. CLONAZEPAM [Concomitant]
     Dosage: =
  20. COLACE [Concomitant]
     Dosage: =
  21. FENTANYL [Concomitant]
     Indication: OSTEOPOROSIS
  22. DUROSEMIDE [Concomitant]
  23. NEURONTIN [Concomitant]
  24. LEVOTHYROXINE SODIUM [Concomitant]
  25. LISINOPRIL [Concomitant]

REACTIONS (25)
  - ARTHRALGIA [None]
  - ASTHENIA [None]
  - BACK PAIN [None]
  - CAROTID ARTERY STENT INSERTION [None]
  - CHEST PAIN [None]
  - CHROMATURIA [None]
  - CONDITION AGGRAVATED [None]
  - CONSTIPATION [None]
  - DIZZINESS [None]
  - DYSPNOEA [None]
  - ENZYME ABNORMALITY [None]
  - FATIGUE [None]
  - HEADACHE [None]
  - HEPATIC ENZYME INCREASED [None]
  - JOINT SWELLING [None]
  - MUSCULOSKELETAL STIFFNESS [None]
  - MYALGIA [None]
  - OEDEMA PERIPHERAL [None]
  - PAIN [None]
  - PARAESTHESIA [None]
  - POLLAKIURIA [None]
  - PULMONARY CONGESTION [None]
  - SWELLING [None]
  - WEIGHT INCREASED [None]
  - WHEEZING [None]
